FAERS Safety Report 4805915-8 (Version None)
Quarter: 2005Q4

REPORT INFORMATION
  Report Type: 
  Country: None (occurrence: None)
  Receive Date: 20051018
  Receipt Date: 20051004
  Transmission Date: 20060501
  Serious: Yes (Other)
  Sender: FDA-Public Use
  Company Number: RPH 42/05

PATIENT
  Age: 26 Year
  Sex: Female

DRUGS (1)
  1. KIT FOR THE PREPARATION OF SODIUM IODINE I 131 SOLUTION + CAPSULES, TH [Suspect]
     Indication: HYPERTHYROIDISM
     Dosage: 12.2 MCI ONCE PO
     Route: 048
     Dates: start: 20050803

REACTIONS (1)
  - DRUG EXPOSURE DURING PREGNANCY [None]
